APPROVED DRUG PRODUCT: HYDROXYCHLOROQUINE SULFATE
Active Ingredient: HYDROXYCHLOROQUINE SULFATE
Strength: 200MG
Dosage Form/Route: TABLET;ORAL
Application: A040133 | Product #001
Applicant: WATSON LABORATORIES INC
Approved: Nov 30, 1995 | RLD: No | RS: No | Type: DISCN